FAERS Safety Report 8578893-6 (Version None)
Quarter: 2012Q3

REPORT INFORMATION
  Report Type: 
  Country: None (occurrence: None)
  Receive Date: 20120726
  Receipt Date: 20120706
  Transmission Date: 20120928
  Serious: Yes (Other)
  Sender: FDA-Public Use
  Company Number: CC070612

PATIENT
  Age: 83 Year
  Sex: Female
  Weight: 43.0917 kg

DRUGS (2)
  1. HYZAAR [Concomitant]
  2. SE-DONNAPB HYOS ELIXIR 16.2/0.1037/0.0194/0.0065/23% [Suspect]
     Indication: IRRITABLE BOWEL SYNDROME
     Dosage: 1 TSP/Q4H@100 LBS
     Route: 048
     Dates: start: 20120705

REACTIONS (5)
  - ANXIETY [None]
  - NAUSEA [None]
  - COUGH [None]
  - THROAT IRRITATION [None]
  - VOMITING [None]
